FAERS Safety Report 6756154-5 (Version None)
Quarter: 2010Q2

REPORT INFORMATION
  Report Type: 
  Country: None (occurrence: None)
  Receive Date: 20100603
  Receipt Date: 20100603
  Transmission Date: 20101027
  Serious: Yes (Hospitalization)
  Sender: FDA-Public Use
  Company Number: None

PATIENT
  Age: 75 Year
  Sex: Male
  Weight: 82.8 kg

DRUGS (2)
  1. PACLITAXEL [Suspect]
     Dosage: 91 MG ONCE IV
     Route: 042
     Dates: start: 20100305, end: 20100305
  2. CARBOPLATIN [Suspect]
     Dosage: 144 MG ONCE IV
     Route: 042
     Dates: start: 20100305, end: 20100305

REACTIONS (4)
  - CONSTIPATION [None]
  - NAUSEA [None]
  - URINARY TRACT INFECTION [None]
  - VOMITING [None]
